FAERS Safety Report 11720968 (Version 1)
Quarter: 2015Q4

REPORT INFORMATION
  Report Type: Spontaneous
  Country: US (occurrence: US)
  Receive Date: 20151110
  Receipt Date: 20151110
  Transmission Date: 20160304
  Serious: No
  Sender: FDA-Public Use
  Company Number: US-SA-2015SA154051

PATIENT
  Age: 42 Year
  Sex: Male

DRUGS (2)
  1. ALIROCUMAB PREFILLED PEN [Concomitant]
     Indication: LIPIDS DECREASED
     Dates: start: 201509
  2. PRALUENT [Suspect]
     Active Substance: ALIROCUMAB
     Indication: LIPIDS DECREASED
     Dosage: FREQUENCY: EVERY 2 WEEKS?START DATE:  23-SEPT-2015 OR 24-SEPT-2015
     Route: 065
     Dates: start: 201509

REACTIONS (3)
  - Pruritus [Recovered/Resolved]
  - Heart rate increased [Recovered/Resolved]
  - Injection site rash [Recovered/Resolved]

NARRATIVE: CASE EVENT DATE: 20150930
